FAERS Safety Report 9287659 (Version 1)
Quarter: 2013Q2

REPORT INFORMATION
  Report Type: Report from Study
  Country: CA (occurrence: CA)
  Receive Date: 20130514
  Receipt Date: 20130514
  Transmission Date: 20140414
  Serious: Yes (Hospitalization, Other)
  Sender: FDA-Public Use
  Company Number: PHHY2013CA006435

PATIENT
  Age: 60 Year
  Sex: Female

DRUGS (2)
  1. GLEEVEC [Suspect]
     Indication: THYMOMA
     Dosage: 400 MG, QD
     Route: 048
     Dates: start: 201211, end: 201303
  2. PREDNISONE [Suspect]
     Indication: MYASTHENIA GRAVIS
     Dosage: 20 MG

REACTIONS (13)
  - Weight decreased [Unknown]
  - Diarrhoea [Unknown]
  - Pneumonia [Unknown]
  - Influenza [Unknown]
  - Asthenia [Unknown]
  - Hepatic enzyme increased [Unknown]
  - Tracheal obstruction [Unknown]
  - Thymoma [Unknown]
  - Dyspnoea [Unknown]
  - Malignant neoplasm progression [Unknown]
  - Eye haemorrhage [Unknown]
  - Alopecia [Recovering/Resolving]
  - Swelling face [Unknown]
